FAERS Safety Report 4265933-8 (Version None)
Quarter: 2004Q1

REPORT INFORMATION
  Report Type: 
  Country: None (occurrence: None)
  Receive Date: 20040106
  Receipt Date: 20031222
  Transmission Date: 20041129
  Serious: Yes (Other)
  Sender: FDA-Public Use
  Company Number: 2003-DE-06449GD

PATIENT
  Age: 38 Year
  Sex: Male

DRUGS (2)
  1. LITHIUM CARBONATE [Suspect]
     Dosage: 900 MG
  2. CELECOXIB (CELECOXIB) [Suspect]
     Dosage: 200 MG

REACTIONS (5)
  - DRUG INTERACTION [None]
  - DRUG LEVEL INCREASED [None]
  - DYSPEPSIA [None]
  - INFLUENZA LIKE ILLNESS [None]
  - TREMOR [None]
